FAERS Safety Report 5873253-0 (Version None)
Quarter: 2008Q3

REPORT INFORMATION
  Report Type: 
  Country: None (occurrence: None)
  Receive Date: 20080908
  Receipt Date: 20080828
  Transmission Date: 20090109
  Serious: Yes (Hospitalization, Other)
  Sender: FDA-Public Use
  Company Number: US-AMGEN-US287829

PATIENT
  Sex: Female
  Weight: 62.7 kg

DRUGS (12)
  1. ARANESP [Suspect]
     Indication: RENAL TRANSPLANT
     Route: 058
     Dates: start: 20061229
  2. CELLCEPT [Concomitant]
  3. PREDNISONE TAB [Concomitant]
     Route: 048
     Dates: start: 20070827
  4. MYCOPHENOLATE MOFETIL [Concomitant]
     Route: 048
     Dates: start: 20070827
  5. LABETALOL HCL [Concomitant]
     Route: 048
     Dates: start: 20071025
  6. CLONIDINE [Concomitant]
     Route: 048
     Dates: start: 20071212
  7. SPIRONOLACTONE [Concomitant]
     Route: 048
     Dates: start: 20071212
  8. MINOXIDIL [Concomitant]
     Route: 048
     Dates: start: 20071212
  9. AMLODIPINE [Concomitant]
     Route: 048
     Dates: start: 20080312
  10. NEURONTIN [Concomitant]
     Route: 048
     Dates: start: 20080615
  11. OXYCODONE HCL [Concomitant]
     Route: 048
     Dates: start: 20080615
  12. VALTREX [Concomitant]
     Route: 048
     Dates: start: 20080616

REACTIONS (7)
  - DUODENITIS [None]
  - GASTRITIS [None]
  - HERPES ZOSTER [None]
  - MALIGNANT RENAL HYPERTENSION [None]
  - REFRACTORY ANAEMIA [None]
  - TRANSPLANT REJECTION [None]
  - WEIGHT DECREASED [None]
